FAERS Safety Report 17155213 (Version 1)
Quarter: 2019Q4

REPORT INFORMATION
  Report Type: Spontaneous
  Country: GB (occurrence: GB)
  Receive Date: 20191215
  Receipt Date: 20191215
  Transmission Date: 20200122
  Serious: Yes (Hospitalization)
  Sender: FDA-Public Use
  Company Number: GB-DEXPHARM-20191104

PATIENT
  Age: 62 Year
  Sex: Female

DRUGS (3)
  1. CETIRIZINE 10 MG TABLETS [Suspect]
     Active Substance: CETIRIZINE HYDROCHLORIDE
  2. LANSOPRAZOLE. [Suspect]
     Active Substance: LANSOPRAZOLE
     Indication: PRODUCT USED FOR UNKNOWN INDICATION
  3. LEVOTHYROXINE. [Suspect]
     Active Substance: LEVOTHYROXINE

REACTIONS (4)
  - Dysarthria [Unknown]
  - Somnolence [Unknown]
  - Wrong product administered [Unknown]
  - Product dispensing error [Unknown]
